FAERS Safety Report 6073991-3 (Version None)
Quarter: 2009Q1

REPORT INFORMATION
  Report Type: 
  Country: None (occurrence: None)
  Receive Date: 20090209
  Receipt Date: 20090209
  Transmission Date: 20090719
  Serious: Yes (Other)
  Sender: FDA-Public Use
  Company Number: None

PATIENT
  Age: 25 Year
  Sex: Male
  Weight: 72.5755 kg

DRUGS (1)
  1. PROPECIA [Suspect]
     Indication: ANDROGENETIC ALOPECIA
     Dosage: 1 MG 1 PO
     Route: 048
     Dates: start: 20090130, end: 20090206

REACTIONS (8)
  - ANXIETY [None]
  - CONFUSIONAL STATE [None]
  - DEPRESSION [None]
  - MENTAL IMPAIRMENT [None]
  - PANIC REACTION [None]
  - PARANOIA [None]
  - SUICIDAL IDEATION [None]
  - THINKING ABNORMAL [None]
